FAERS Safety Report 21958567 (Version 3)
Quarter: 2023Q1

REPORT INFORMATION
  Report Type: Spontaneous
  Country: US (occurrence: US)
  Receive Date: 20230206
  Receipt Date: 20230327
  Transmission Date: 20230418
  Serious: Yes (Hospitalization)
  Sender: FDA-Public Use
  Company Number: US-ELI_LILLY_AND_COMPANY-US202301012779

PATIENT
  Age: 51 Year
  Sex: Female
  Weight: 66 kg

DRUGS (2)
  1. MOUNJARO [Suspect]
     Active Substance: TIRZEPATIDE
     Indication: Weight increased
     Dosage: 7.5 MG, WEEKLY (1/W)
     Route: 058
     Dates: start: 20220822, end: 20230102
  2. MOUNJARO [Suspect]
     Active Substance: TIRZEPATIDE
     Indication: Body mass index abnormal

REACTIONS (3)
  - Portal vein thrombosis [Recovered/Resolved]
  - Colitis ischaemic [Recovering/Resolving]
  - Off label use [Unknown]

NARRATIVE: CASE EVENT DATE: 20230101
